FAERS Safety Report 10044608 (Version 1)
Quarter: 2014Q1

REPORT INFORMATION
  Report Type: Spontaneous
  Country: BR (occurrence: BR)
  Receive Date: 20140328
  Receipt Date: 20140328
  Transmission Date: 20141002
  Serious: Yes (Hospitalization, Other)
  Sender: FDA-Public Use
  Company Number: BR-ASTRAZENECA-2014SE19631

PATIENT
  Age: 60 Year
  Sex: Female
  Weight: 70 kg

DRUGS (7)
  1. ATENOL [Suspect]
     Indication: HYPERTENSION
     Route: 048
     Dates: start: 2012, end: 201402
  2. ATENOL [Suspect]
     Indication: HYPERTENSION
     Route: 048
     Dates: start: 201402
  3. ATACAND [Suspect]
     Indication: HYPERTENSION
     Dosage: DAILY
     Route: 048
     Dates: start: 2012, end: 20140319
  4. ATACAND HCT [Suspect]
     Indication: HYPERTENSION
     Dosage: 16/12.5 MG, DAILY
     Route: 048
     Dates: start: 20140320
  5. MELOXICAM [Suspect]
     Indication: ARTHRALGIA
     Route: 048
     Dates: start: 201401
  6. CHLORTHALIDONE [Concomitant]
     Indication: HYPERTENSION
     Dosage: DAILY
     Route: 048
     Dates: start: 2012
  7. ARCOXIA [Concomitant]
     Indication: ANTIINFLAMMATORY THERAPY
     Route: 048
     Dates: start: 201402

REACTIONS (8)
  - Fall [Recovered/Resolved]
  - Blood pressure increased [Recovering/Resolving]
  - Meniscus injury [Recovering/Resolving]
  - Nausea [Not Recovered/Not Resolved]
  - Drug ineffective [Unknown]
  - Off label use [Not Recovered/Not Resolved]
  - Drug dispensing error [Recovered/Resolved]
  - Wrong drug administered [Not Recovered/Not Resolved]
